FAERS Safety Report 10161917 (Version 2)
Quarter: 2014Q2

REPORT INFORMATION
  Report Type: Report from Study
  Country: CA (occurrence: CA)
  Receive Date: 20140509
  Receipt Date: 20140523
  Transmission Date: 20141212
  Serious: Yes (Other)
  Sender: FDA-Public Use
  Company Number: CA-JNJFOC-20140500811

PATIENT
  Age: 69 Year
  Sex: Male
  Weight: 104.33 kg

DRUGS (1)
  1. STELARA [Suspect]
     Indication: PSORIASIS
     Route: 058
     Dates: start: 201204, end: 201404

REACTIONS (2)
  - Prostate cancer [Unknown]
  - Drug ineffective [Unknown]
